FAERS Safety Report 7267684-4 (Version None)
Quarter: 2011Q1

REPORT INFORMATION
  Report Type: 
  Country: None (occurrence: None)
  Receive Date: 20110121
  Receipt Date: 20110110
  Transmission Date: 20110831
  Serious: Yes (Hospitalization)
  Sender: FDA-Public Use
  Company Number: 025101

PATIENT
  Sex: Male

DRUGS (10)
  1. KEPPRA [Suspect]
     Indication: EPILEPSY
     Dosage: (250 MG BID ORAL), (500 MG BID ORAL)
     Route: 048
     Dates: start: 20100301
  2. KEPPRA [Suspect]
     Indication: EPILEPSY
     Dosage: (250 MG BID ORAL), (500 MG BID ORAL)
     Route: 048
     Dates: start: 20100201, end: 20100301
  3. MYSOLINE [Suspect]
     Indication: ESSENTIAL TREMOR
     Dosage: (500 MG TID ORAL)
     Route: 048
     Dates: end: 20100301
  4. OXYGEN [Concomitant]
  5. TAMSULOSINE HCL A [Concomitant]
  6. CLONAZEPAM [Suspect]
     Indication: FACIAL PAIN
     Dosage: (10 DROPS ORAL)
     Route: 048
     Dates: end: 20100301
  7. FORLAX [Concomitant]
  8. NEXIUM [Concomitant]
  9. COUMADIN [Concomitant]
  10. HEPTAMINOL [Concomitant]

REACTIONS (3)
  - DISTURBANCE IN ATTENTION [None]
  - SOMNOLENCE [None]
  - PULMONARY CONGESTION [None]
